FAERS Safety Report 19845804 (Version 1)
Quarter: 2021Q3

REPORT INFORMATION
  Report Type: Report from Study
  Country: US (occurrence: US)
  Receive Date: 20210916
  Receipt Date: 20210916
  Transmission Date: 20211014
  Serious: Yes (Other)
  Sender: FDA-Public Use
  Company Number: US-TAKEDA-2021TUS057180

PATIENT
  Sex: Female

DRUGS (12)
  1. VEDOLIZUMAB [Suspect]
     Active Substance: VEDOLIZUMAB
     Indication: COLITIS ULCERATIVE
     Dosage: 300 MILLIGRAM
     Route: 063
     Dates: start: 20160615, end: 20180605
  2. EFFEXOR [Concomitant]
     Active Substance: VENLAFAXINE HYDROCHLORIDE
     Indication: BIPOLAR DISORDER
     Dosage: 187.5 MILLIGRAM, QD
     Route: 048
     Dates: start: 20171103, end: 20180819
  3. DHA [Concomitant]
     Active Substance: DIETARY SUPPLEMENT
     Dosage: 200 MILLIGRAM, QD
     Route: 048
     Dates: start: 20171201, end: 20180819
  4. TYLENOL [Concomitant]
     Active Substance: ACETAMINOPHEN
     Indication: ARTHRALGIA
     Dosage: 1250 MILLIGRAM, QD
     Route: 048
     Dates: start: 20180330, end: 20180626
  5. WITCH HAZEL. [Concomitant]
     Active Substance: WITCH HAZEL
     Indication: HAEMORRHOIDS
     Dosage: UNK
     Dates: start: 20180605, end: 20180819
  6. ZYRTEC [Concomitant]
     Active Substance: CETIRIZINE HYDROCHLORIDE
     Indication: HYPERSENSITIVITY
     Dosage: 1 UNK, QD
     Route: 048
     Dates: start: 20180216, end: 20180819
  7. LIQUOR AMMONII ANI [Concomitant]
     Dosage: UNK
     Route: 048
     Dates: start: 20171103, end: 20171201
  8. TDAP [Concomitant]
     Active Substance: TETANUS TOXOID, REDUCED DIPHTHERIA TOXOID AND ACELLULAR PERTUSSIS VACCINE ADSORBED, TDAP
     Dosage: UNK
     Route: 030
     Dates: start: 20180608, end: 20180608
  9. MAGNESIUM [Concomitant]
     Active Substance: MAGNESIUM
     Indication: BLOOD PRESSURE INCREASED
     Dosage: UNK
     Route: 042
     Dates: start: 20180816, end: 20180819
  10. RASPBERRY LEAF [Concomitant]
     Dosage: UNK
     Dates: start: 20180616, end: 20180619
  11. FOLIC ACID. [Concomitant]
     Active Substance: FOLIC ACID
     Dosage: 1 MILLIGRAM, BID
     Route: 048
     Dates: start: 20171218, end: 20180819
  12. TYLENOL [Concomitant]
     Active Substance: ACETAMINOPHEN
     Indication: PAIN MANAGEMENT
     Dosage: 800 MILLIGRAM, QD
     Route: 048
     Dates: start: 20180221, end: 20180302

REACTIONS (3)
  - Foetal exposure during pregnancy [Unknown]
  - Speech disorder developmental [Unknown]
  - Autism spectrum disorder [Unknown]
